FAERS Safety Report 9386320 (Version 2)
Quarter: 2013Q3

REPORT INFORMATION
  Report Type: Spontaneous
  Country: US (occurrence: US)
  Receive Date: 20130708
  Receipt Date: 20130723
  Transmission Date: 20140515
  Serious: Yes (Other)
  Sender: FDA-Public Use
  Company Number: CHPA2013US010530

PATIENT
  Age: 66 Year
  Sex: Female

DRUGS (4)
  1. EXCEDRIN EXTRA STRENGTH [Suspect]
     Indication: HEADACHE
     Dosage: UNK, ONCE OR TWICE A WEEK
     Route: 048
  2. EXCEDRIN EXTRA STRENGTH [Suspect]
     Indication: BACK PAIN
     Dosage: 2 DF, QD
     Route: 048
  3. EXCEDRIN EXTRA STRENGTH [Suspect]
     Indication: PAIN
  4. EXCEDRIN MIGRAINE [Concomitant]
     Indication: BACK PAIN
     Dosage: 2 DF, QD
     Route: 048

REACTIONS (1)
  - Lumbar spinal stenosis [Not Recovered/Not Resolved]
